FAERS Safety Report 10749554 (Version 1)
Quarter: 2015Q1

REPORT INFORMATION
  Report Type: Spontaneous
  Country: BR (occurrence: BR)
  Receive Date: 20150129
  Receipt Date: 20150129
  Transmission Date: 20150721
  Serious: Yes (Other)
  Sender: FDA-Public Use
  Company Number: BR-GLAXOSMITHKLINE-BR2015GSK011054

PATIENT
  Sex: Male
  Weight: 60 kg

DRUGS (3)
  1. BACTROBAN [Suspect]
     Active Substance: MUPIROCIN\MUPIROCIN CALCIUM
     Indication: FUNGAL INFECTION
     Dosage: UNK
     Route: 061
     Dates: start: 20150116, end: 20150118
  2. ITRASPOR [Suspect]
     Active Substance: ITRACONAZOLE
     Indication: FUNGAL INFECTION
     Dosage: 4 DF, UNK
     Route: 048
     Dates: start: 20150118, end: 20150118
  3. ICADEN [Suspect]
     Active Substance: ISOCONAZOLE
     Indication: FUNGAL INFECTION
     Dosage: UNK
     Route: 061
     Dates: start: 20150118, end: 20150121

REACTIONS (5)
  - Haemorrhage [Not Recovered/Not Resolved]
  - Oedema [Not Recovered/Not Resolved]
  - Hypersensitivity [Not Recovered/Not Resolved]
  - Pruritus [Not Recovered/Not Resolved]
  - Erythema [Not Recovered/Not Resolved]
